FAERS Safety Report 16752847 (Version 2)
Quarter: 2019Q3

REPORT INFORMATION
  Report Type: Spontaneous
  Country: CA (occurrence: CA)
  Receive Date: 20190829
  Receipt Date: 20190919
  Transmission Date: 20191005
  Serious: Yes (Other)
  Sender: FDA-Public Use
  Company Number: CA-TEVA-2019-CA-1098681

PATIENT
  Age: 10 Year
  Sex: Male

DRUGS (41)
  1. VINCRISTINE [Suspect]
     Active Substance: VINCRISTINE
     Dosage: RECEIVED ON DAY 1 DURING CHEMOTHERAPY COURSE (R-COPADM-1 AND 2)
     Route: 040
  2. METHOTREXATE. [Suspect]
     Active Substance: METHOTREXATE
     Dosage: RECEIVED 3G/M2 OVER 3 HOURS ON DAY 1 DURING CHEMOTHERAPY COURSE (R-COPADM-1 AND 2).
     Route: 042
  3. FILGRASTIM [Concomitant]
     Active Substance: FILGRASTIM
     Route: 065
  4. FILGRASTIM [Concomitant]
     Active Substance: FILGRASTIM
     Dosage: RECEIVED DURING CHEMOTHERAPY COURSE R-CYVE 1 AND 2
     Route: 058
  5. VINCRISTINE [Suspect]
     Active Substance: VINCRISTINE
     Dosage: RECEIVED ON DAY 1 DURING MAINTENANCE COURSE M1
     Route: 040
  6. PREDNISONE. [Suspect]
     Active Substance: PREDNISONE
     Indication: BURKITT^S LYMPHOMA STAGE III
     Dosage: RECEIVED ON DAY 1-7 DURING PRE-PHASE
     Route: 048
  7. HYDROCORTISONE. [Suspect]
     Active Substance: HYDROCORTISONE
     Indication: BURKITT^S LYMPHOMA STAGE III
     Dosage: RECEIVED ON DAYS 2 AND 6 DURING CHEMOTHERAPY COURSE (R-COPADM-1 AND 2).
     Route: 037
  8. DOXORUBICIN [Suspect]
     Active Substance: DOXORUBICIN
     Indication: BURKITT^S LYMPHOMA STAGE III
     Dosage: RECEIVED OVER 15 MINUTES ON DAY 2 DURING CHEMOTHERAPY COURSE (R-COPADM-1 AND 2)
     Route: 042
  9. DOXORUBICIN [Suspect]
     Active Substance: DOXORUBICIN
     Dosage: RECEIVED OVER 60MINUTES, ON DAYS 2 AND 3 DURING MAINTENANCE COURSE M1
     Route: 042
  10. RITUXIMAB. [Suspect]
     Active Substance: RITUXIMAB
     Indication: BURKITT^S LYMPHOMA STAGE III
     Dosage: RECEIVED ON DAY 1 DURING CHEMOTHERAPY REGIMEN R-CYVE 1 AND 2
     Route: 042
  11. CYTARABINE. [Suspect]
     Active Substance: CYTARABINE
     Indication: BURKITT^S LYMPHOMA STAGE III
     Dosage: RECEIVED OVER 3 HOURS ON DAYS 2-5 DURING CHEMOTHERAPY COURSE R-CYVE 1 AND 2
     Route: 042
  12. RITUXIMAB. [Suspect]
     Active Substance: RITUXIMAB
     Indication: BURKITT^S LYMPHOMA STAGE III
     Dosage: RECEIVED ON DAY 1 DURING CHEMOTHERAPY REGIMEN R-CYM 1
     Route: 042
  13. CYTARABINE. [Suspect]
     Active Substance: CYTARABINE
     Indication: BURKITT^S LYMPHOMA STAGE III
     Dosage: RECEIVED ON DAY 1-5 DURING MAINTENANCE COURSE M2
     Route: 065
  14. RASBURICASE [Concomitant]
     Active Substance: RASBURICASE
     Indication: TUMOUR LYSIS SYNDROME
     Route: 065
  15. PREDNISONE. [Suspect]
     Active Substance: PREDNISONE
     Dosage: RECEIVED ON DAY 1-5, THEN TAPER OVER 3 DAYS DURING MAINTENANCE COURSE M1
     Route: 048
  16. METHOTREXATE. [Suspect]
     Active Substance: METHOTREXATE
     Indication: BURKITT^S LYMPHOMA STAGE III
     Dosage: RECEIVED ON DAY 1 DURING PRE-PHASE
     Route: 037
  17. METHOTREXATE. [Suspect]
     Active Substance: METHOTREXATE
     Dosage: RECEIVED ON DAY 2 DURING MAINTENANCE COURSE M1
     Route: 037
  18. METHOTREXATE. [Suspect]
     Active Substance: METHOTREXATE
     Dosage: RECEIVED 8G/M2 OVER 4 HOURS ON DAY 1 DURING MAINTENANCE COURSE M1
     Route: 042
  19. ETOPOSIDE. [Suspect]
     Active Substance: ETOPOSIDE
     Dosage: RECEIVED OVER 2 HOURS, ON DAYS 1, 2 AND 3
     Route: 042
  20. CYTARABINE. [Suspect]
     Active Substance: CYTARABINE
     Indication: BURKITT^S LYMPHOMA STAGE III
     Dosage: RECEIVED OVER 24 HOURS ON DAYS 2-6 DURING CHEMOTHERAPY COURSE R-CYM-1
     Route: 041
  21. LEUCOVORIN. [Concomitant]
     Active Substance: LEUCOVORIN
     Dosage: RECEIVED AT 48 AND 60 HOURS AFTER METHOTREXATE DURING ON DAY 6 DURING CHEMOTHERAPY COURSE (R-COPA...
     Route: 048
  22. METHOTREXATE. [Suspect]
     Active Substance: METHOTREXATE
     Dosage: RECEIVED ON DAYS 2 AND 6 DURING CHEMOTHERAPY COURSE (R-COPADM-1 AND 2).
     Route: 037
  23. HYDROCORTISONE. [Suspect]
     Active Substance: HYDROCORTISONE
     Indication: BURKITT^S LYMPHOMA STAGE III
     Dosage: RECEIVED ON DAY 1 DURING PRE-PHASE
     Route: 037
  24. VINCRISTINE [Suspect]
     Active Substance: VINCRISTINE
     Indication: BURKITT^S LYMPHOMA STAGE III
     Dosage: RECEIVED ON DAY 1 DURING PRE-PHASE
     Route: 040
  25. PREDNISONE. [Suspect]
     Active Substance: PREDNISONE
     Dosage: RECEIVED ON DAY 1-5, THEN TAPER OVER 3 DAYS DURING CHEMOTHERAPY COURSE (R-COPADM-1 AND 2).
     Route: 048
  26. CYCLOPHOSPHAMIDE. [Suspect]
     Active Substance: CYCLOPHOSPHAMIDE
     Dosage: RECEIVED OVER 30 MINUTES ON DAYS 2, 3 AND 4 DURING CHEMOTHERAPY COURSE (R-COPADM-1 AND 2).
     Route: 042
  27. CYTARABINE. [Suspect]
     Active Substance: CYTARABINE
     Indication: BURKITT^S LYMPHOMA STAGE III
     Dosage: RECEIVED OVER 12 HOURS, ON DAYS 1-5 DURING CHEMOTHERAPY COURSE R-CYVE 1 AND 2
     Route: 041
  28. CYTARABINE. [Suspect]
     Active Substance: CYTARABINE
     Indication: BURKITT^S LYMPHOMA STAGE III
     Dosage: RECEIVED ON DAY 2 DURING MAINTENANCE COURSE M1
     Route: 037
  29. LEUCOVORIN. [Concomitant]
     Active Substance: LEUCOVORIN
     Dosage: RECEIVED DURING CHEMOTHERAPY COURSE R-CYM-1
     Route: 065
  30. LEVOFLOXACIN. [Concomitant]
     Active Substance: LEVOFLOXACIN
     Indication: INHIBITORY DRUG INTERACTION
     Route: 048
  31. METHOTREXATE. [Suspect]
     Active Substance: METHOTREXATE
     Dosage: RECEIVED 3G/M2 OVER 3 HOURS ON DAY 1 DURING CHEMOTHERAPY REGIMEN R-CYM 1.
     Route: 042
  32. HYDROCORTISONE. [Suspect]
     Active Substance: HYDROCORTISONE
     Indication: BURKITT^S LYMPHOMA STAGE III
     Dosage: RECEIVED ON DAY 2 DURING MAINTENANCE COURSE M1
     Route: 037
  33. CYCLOPHOSPHAMIDE. [Suspect]
     Active Substance: CYCLOPHOSPHAMIDE
     Dosage: RECEIVED OVER 60MINUTES, ON DAYS 2 AND 3 DURING MAINTENANCE COURSE M1
     Route: 042
  34. LEUCOVORIN. [Concomitant]
     Active Substance: LEUCOVORIN
     Dosage: RECEIVED DURING MAINTENANCE COURSE M1
     Route: 065
  35. METHOTREXATE. [Suspect]
     Active Substance: METHOTREXATE
     Dosage: RECEIVED ON DAY 2 DURING CHEMOTHERAPY COURSE R-CYM-1
     Route: 037
  36. HYDROCORTISONE. [Suspect]
     Active Substance: HYDROCORTISONE
     Indication: BURKITT^S LYMPHOMA STAGE III
     Dosage: RECEIVED ON DAYS 2 AND 7 DURING CHEMOTHERAPY COURSE R-CYM-1
     Route: 037
  37. ETOPOSIDE. [Suspect]
     Active Substance: ETOPOSIDE
     Indication: BURKITT^S LYMPHOMA STAGE III
     Dosage: RECEIVED OVER 2 HOURS, ON DAYS 2-5 DURING CHEMOTHERAPY COURSE R-CYVE 1 AND 2
     Route: 042
  38. CYCLOPHOSPHAMIDE. [Suspect]
     Active Substance: CYCLOPHOSPHAMIDE
     Indication: BURKITT^S LYMPHOMA STAGE III
     Dosage: OVER 30 MINUTES ON DAY 1 DURING PRE-PHASE
     Route: 042
  39. RITUXIMAB. [Suspect]
     Active Substance: RITUXIMAB
     Indication: BURKITT^S LYMPHOMA STAGE III
     Dosage: RECEIVED ON DAY -1 AND DAY +1 DURING CHEMOTHERAPY COURSE (R-COPADM-1 AND 2)
     Route: 042
  40. CYTARABINE. [Suspect]
     Active Substance: CYTARABINE
     Indication: BURKITT^S LYMPHOMA STAGE III
     Dosage: RECEIVED ON DAY 7 DURING CHEMOTHERAPY COURSE R-CYM-1
     Route: 037
  41. CASPOFUNGIN [Concomitant]
     Active Substance: CASPOFUNGIN
     Indication: INHIBITORY DRUG INTERACTION
     Route: 042

REACTIONS (9)
  - Clostridium difficile infection [Unknown]
  - Rash pruritic [Recovered/Resolved]
  - Rash erythematous [Recovered/Resolved]
  - Mucosal inflammation [Unknown]
  - Hypotension [Unknown]
  - Candida infection [Unknown]
  - Febrile neutropenia [Recovering/Resolving]
  - Full blood count decreased [Recovered/Resolved]
  - Skin disorder [Recovering/Resolving]
